FAERS Safety Report 18300246 (Version 1)
Quarter: 2020Q3

REPORT INFORMATION
  Report Type: Spontaneous
  Country: US (occurrence: US)
  Receive Date: 20200922
  Receipt Date: 20200922
  Transmission Date: 20201103
  Serious: No
  Sender: FDA-Public Use
  Company Number: None

PATIENT
  Age: 82 Year
  Sex: Female
  Weight: 51.7 kg

DRUGS (12)
  1. PROPAFENONE 150MG [Concomitant]
  2. XALATAN [Concomitant]
     Active Substance: LATANOPROST
  3. TYLENOL [Concomitant]
     Active Substance: ACETAMINOPHEN
  4. COENZYME Q10 [Concomitant]
     Active Substance: DIETARY SUPPLEMENT\UBIDECARENONE
  5. MULTIVITAMIN [Concomitant]
     Active Substance: VITAMINS
  6. CAPECITABINE. [Suspect]
     Active Substance: CAPECITABINE
     Indication: RECTAL CANCER
     Route: 048
     Dates: start: 20200910
  7. METOPROLOL 25 [Concomitant]
  8. NORVASC [Concomitant]
     Active Substance: AMLODIPINE BESYLATE
  9. GARLIC 100MG [Concomitant]
  10. ASPIRIN 81MG [Concomitant]
     Active Substance: ASPIRIN
  11. ISOSORBIDE MONONITRATE 30MG [Concomitant]
     Active Substance: ISOSORBIDE MONONITRATE
  12. MAGNESIUM [Concomitant]
     Active Substance: MAGNESIUM

REACTIONS (2)
  - Therapy interrupted [None]
  - Accidental overdose [None]

NARRATIVE: CASE EVENT DATE: 20200919
